FAERS Safety Report 22585137 (Version 2)
Quarter: 2023Q2

REPORT INFORMATION
  Report Type: Spontaneous
  Country: FR (occurrence: FR)
  Receive Date: 20230609
  Receipt Date: 20230627
  Transmission Date: 20230722
  Serious: Yes (Death)
  Sender: FDA-Public Use
  Company Number: FR-BIOMARINAP-FR-2023-150865

PATIENT

DRUGS (1)
  1. BRINEURA [Suspect]
     Active Substance: CERLIPONASE ALFA
     Indication: Neuronal ceroid lipofuscinosis
     Dosage: 300 MILLIGRAM
     Route: 065
     Dates: start: 20190423

REACTIONS (1)
  - Status dystonicus [Fatal]

NARRATIVE: CASE EVENT DATE: 20230613
